FAERS Safety Report 6294430-3 (Version None)
Quarter: 2009Q3

REPORT INFORMATION
  Report Type: 
  Country: None (occurrence: None)
  Receive Date: 20090803
  Receipt Date: 20090728
  Transmission Date: 20100115
  Serious: Yes (Other)
  Sender: FDA-Public Use
  Company Number: BR-ROCHE-646631

PATIENT
  Age: 35 Year
  Sex: Male
  Weight: 65 kg

DRUGS (1)
  1. RIVOTRIL [Suspect]
     Indication: ANXIETY
     Dosage: OTHER INDICATION: INSOMNIA
     Route: 048
     Dates: start: 20080101

REACTIONS (6)
  - CHILLS [None]
  - DEAFNESS [None]
  - DEPENDENCE [None]
  - NAUSEA [None]
  - SYNCOPE [None]
  - TREMOR [None]
